FAERS Safety Report 19627541 (Version 3)
Quarter: 2021Q3

REPORT INFORMATION
  Report Type: Spontaneous
  Country: JP (occurrence: JP)
  Receive Date: 20210729
  Receipt Date: 20210927
  Transmission Date: 20211014
  Serious: Yes (Death, Life-Threatening, Hospitalization, Other)
  Sender: FDA-Public Use
  Company Number: JP-ACCORD-233750

PATIENT
  Age: 79 Year
  Sex: Male

DRUGS (2)
  1. CAPECITABINE. [Suspect]
     Active Substance: CAPECITABINE
     Indication: COLON CANCER
     Dosage: 8?COURSE XELOX REGIMEN EVERY 3 WEEKS
  2. OXALIPLATIN. [Suspect]
     Active Substance: OXALIPLATIN
     Indication: COLON CANCER
     Dosage: 8?COURSE XELOX REGIMEN EVERY 3 WEEKS

REACTIONS (2)
  - Acute myeloid leukaemia [Fatal]
  - Cytogenetic abnormality [Fatal]
